FAERS Safety Report 20403149 (Version 1)
Quarter: 2022Q1

REPORT INFORMATION
  Report Type: Spontaneous
  Country: FI (occurrence: None)
  Receive Date: 20220131
  Receipt Date: 20220131
  Transmission Date: 20220423
  Serious: Yes (Hospitalization, Other)
  Sender: FDA-Public Use
  Company Number: FI-ROCHE-3004728

PATIENT
  Age: 58 Year
  Sex: Female

DRUGS (1)
  1. HERCEPTIN [Suspect]
     Active Substance: TRASTUZUMAB
     Indication: HER2 positive breast cancer
     Route: 042
     Dates: start: 202012

REACTIONS (2)
  - Vomiting [Unknown]
  - Liver function test increased [Unknown]
